FAERS Safety Report 21167767 (Version 2)
Quarter: 2023Q1

REPORT INFORMATION
  Report Type: Spontaneous
  Country: US (occurrence: US)
  Receive Date: 20220803
  Receipt Date: 20230112
  Transmission Date: 20230418
  Serious: Yes (Other)
  Sender: FDA-Public Use
  Company Number: US-PFIZER INC-PV202200034829

PATIENT
  Age: 56 Year
  Sex: Female

DRUGS (1)
  1. INLYTA [Suspect]
     Active Substance: AXITINIB
     Dosage: UNK
     Dates: end: 202212

REACTIONS (4)
  - Melaena [Unknown]
  - Abdominal pain upper [Unknown]
  - Dysphagia [Unknown]
  - Eye disorder [Unknown]
